FAERS Safety Report 9262773 (Version 1)
Quarter: 2013Q2

REPORT INFORMATION
  Report Type: Spontaneous
  Country: US (occurrence: US)
  Receive Date: 20130430
  Receipt Date: 20130430
  Transmission Date: 20140414
  Serious: Yes (Other)
  Sender: FDA-Public Use
  Company Number: US-JNJFOC-20130413199

PATIENT
  Age: 75 Year
  Sex: Male
  Weight: 82.56 kg

DRUGS (2)
  1. REMICADE [Suspect]
     Indication: CROHN^S DISEASE
     Dosage: USED AT LEAST FOR 2 YEARS
     Route: 042
  2. TYLENOL [Concomitant]
     Route: 065

REACTIONS (1)
  - Cerebrovascular accident [Unknown]
